FAERS Safety Report 21915157 (Version 1)
Quarter: 2023Q1

REPORT INFORMATION
  Report Type: Spontaneous
  Country: US (occurrence: US)
  Receive Date: 20230126
  Receipt Date: 20230126
  Transmission Date: 20230417
  Serious: No
  Sender: FDA-Public Use
  Company Number: US-CATALYST PHARMACEUTICALS, INC-2022CAT00185

PATIENT
  Age: 70 Year
  Sex: Male
  Weight: 115.67 kg

DRUGS (19)
  1. FIRDAPSE [Suspect]
     Active Substance: AMIFAMPRIDINE PHOSPHATE
     Indication: Myasthenic syndrome
     Dosage: 80 MG, PER DAY (IN DIVIDED DOSES)
     Dates: start: 2022
  2. FIRDAPSE [Suspect]
     Active Substance: AMIFAMPRIDINE PHOSPHATE
     Dosage: 30 MG, DAILY FOR 5 DAYS, THEN INCREASE 10 MG EVERY 5 DAYS TO A MAXIMUM DOSE OF 80 MG DAILY
     Route: 048
     Dates: start: 20220331, end: 20220404
  3. FIRDAPSE [Suspect]
     Active Substance: AMIFAMPRIDINE PHOSPHATE
     Dosage: 40 MG, DAILY FOR 5 DAYS, THEN INCREASE 10 MG EVERY 5 DAYS TO A MAXIMUM DOSE OF 80 MG DAILY
     Route: 048
     Dates: start: 20220405, end: 2022
  4. FIRDAPSE [Suspect]
     Active Substance: AMIFAMPRIDINE PHOSPHATE
     Dosage: 10 MG, 2X/DAY FOR 5 DAYS, THEN INCREASE 10 MG EVERY 5 DAYS TO A MAXIMUM DOSE OF 80 MG DAILY
     Route: 048
     Dates: start: 20220326, end: 20220330
  5. ALLOPURINOL [Concomitant]
     Active Substance: ALLOPURINOL
     Dosage: 300 MG, 1X/DAY
  6. DILAUDID [Concomitant]
     Active Substance: HYDROMORPHONE HYDROCHLORIDE
     Dosage: 2 MG, AS NEEDED
  7. ELIQUIS [Concomitant]
     Active Substance: APIXABAN
     Dosage: 5 MG, 2X/DAY
  8. FAMOTIDINE [Concomitant]
     Active Substance: FAMOTIDINE
     Dosage: 20 MG, 2X/DAY
  9. GABAPENTIN [Concomitant]
     Active Substance: GABAPENTIN
     Dosage: 300 MG, 1X/DAY AT NIGHT
  10. HYDRALAZINE [Concomitant]
     Active Substance: HYDRALAZINE HYDROCHLORIDE
     Dosage: 10 MG, AS NEEDED
  11. MELATONIN [Concomitant]
     Active Substance: MELATONIN
     Dosage: UNK
  12. METOPROLOL TARTRATE [Concomitant]
     Active Substance: METOPROLOL TARTRATE
     Dosage: 12.5 MG, 2X/DAY
  13. MIDOZALAM [Concomitant]
     Dosage: UNK
  14. OXYCODONE [Concomitant]
     Active Substance: OXYCODONE
     Dosage: 5 TO 10 MG, AS NEEDED
  15. PREDNISONE [Concomitant]
     Active Substance: PREDNISONE
     Dosage: 60 MG, 1X/DAY
  16. LYRICA [Concomitant]
     Active Substance: PREGABALIN
     Dosage: 200 MG, 2X/DAY
  17. SENOKOT [Concomitant]
     Active Substance: SENNOSIDES
     Dosage: UNK
  18. TRAZODONE [Concomitant]
     Active Substance: TRAZODONE HYDROCHLORIDE
     Dosage: 50 MG, 1X/DAY AT NIGHT
  19. ZYPREXA [Concomitant]
     Active Substance: OLANZAPINE
     Dosage: 20 MG, 1X/DAY

REACTIONS (2)
  - Wrong technique in product usage process [Not Recovered/Not Resolved]
  - Drug ineffective [Not Recovered/Not Resolved]

NARRATIVE: CASE EVENT DATE: 20220326
